FAERS Safety Report 24354589 (Version 1)
Quarter: 2024Q3

REPORT INFORMATION
  Report Type: Spontaneous
  Country: CN (occurrence: CN)
  Receive Date: 20240923
  Receipt Date: 20240923
  Transmission Date: 20241016
  Serious: Yes (Life-Threatening, Hospitalization, Other)
  Sender: NOVARTIS
  Company Number: CN-002147023-NVSC2024CN185622

PATIENT
  Age: 73 Year
  Sex: Female

DRUGS (2)
  1. CARBAMAZEPINE [Suspect]
     Active Substance: CARBAMAZEPINE
     Indication: Seizure
     Dosage: 0.1 G, TID
     Route: 048
  2. PHENYTOIN SODIUM [Suspect]
     Active Substance: PHENYTOIN SODIUM
     Indication: Seizure
     Dosage: 0.1 G, BIW
     Route: 048

REACTIONS (16)
  - SJS-TEN overlap [Unknown]
  - Pain [Unknown]
  - Pruritus [Unknown]
  - Rash erythematous [Unknown]
  - Purpura [Unknown]
  - Skin exfoliation [Unknown]
  - Mucosal erosion [Unknown]
  - Swelling of eyelid [Unknown]
  - Dry mouth [Unknown]
  - Lip ulceration [Unknown]
  - Pyrexia [Unknown]
  - Lymphadenopathy [Unknown]
  - Lymph node palpable [Unknown]
  - Fulminant type 1 diabetes mellitus [Unknown]
  - Ketonuria [Unknown]
  - Hyperglycaemia [Unknown]
